FAERS Safety Report 13676522 (Version 4)
Quarter: 2017Q4

REPORT INFORMATION
  Report Type: Report from Study
  Country: US (occurrence: US)
  Receive Date: 20170622
  Receipt Date: 20171004
  Transmission Date: 20180320
  Serious: No
  Sender: FDA-Public Use
  Company Number: PHEH2017US018103

PATIENT
  Sex: Female

DRUGS (2)
  1. FEMARA [Suspect]
     Active Substance: LETROZOLE
     Indication: PRODUCT USED FOR UNKNOWN INDICATION
     Dosage: UNK
     Route: 048
  2. LETROZOLE. [Suspect]
     Active Substance: LETROZOLE
     Indication: PRODUCT USED FOR UNKNOWN INDICATION
     Route: 065

REACTIONS (10)
  - Pain [Unknown]
  - Aphasia [Unknown]
  - Memory impairment [Unknown]
  - Nausea [Unknown]
  - Gait disturbance [Unknown]
  - Vertigo [Unknown]
  - Headache [Unknown]
  - Dyskinesia [Unknown]
  - Dizziness [Unknown]
  - Fatigue [Unknown]
